FAERS Safety Report 7073248-8 (Version None)
Quarter: 2010Q4

REPORT INFORMATION
  Report Type: 
  Country: None (occurrence: None)
  Receive Date: 20101029
  Receipt Date: 20100712
  Transmission Date: 20110411
  Serious: No
  Sender: FDA-Public Use
  Company Number: A0859994A

PATIENT
  Age: 65 Year
  Sex: Male

DRUGS (3)
  1. ADVAIR DISKUS 100/50 [Suspect]
     Indication: ASTHMA
     Dosage: 1PUFF TWICE PER DAY
     Route: 055
     Dates: start: 20070101
  2. SINGULAIR [Concomitant]
  3. UNSPECIFIED MEDICATION [Concomitant]
     Indication: HEART RATE INCREASED

REACTIONS (7)
  - ACUTE SINUSITIS [None]
  - COUGH [None]
  - HYPERHIDROSIS [None]
  - MUSCULAR WEAKNESS [None]
  - NON-CARDIAC CHEST PAIN [None]
  - THROAT IRRITATION [None]
  - UPPER RESPIRATORY TRACT INFECTION [None]
